FAERS Safety Report 8178133 (Version 4)
Quarter: 2012Q4

REPORT INFORMATION
  Report Type: 
  Country: US (occurrence: US)
  Receive Date: 20111012
  Receipt Date: 20120921
  Transmission Date: 20130627
  Serious: Yes (Hospitalization, Other)
  Sender: FDA-Public Use
  Company Number: US-ROCHE-1001669

PATIENT
  Age: 19 None
  Sex: Male
  Weight: 205 kg

DRUGS (4)
  1. ACCUTANE [Suspect]
     Indication: ACNE
     Route: 065
     Dates: start: 1988
  2. ACCUTANE [Suspect]
     Route: 065
     Dates: start: 19890110, end: 19890121
  3. RETIN A CREAM [Concomitant]
  4. MINOCYCLINE [Concomitant]

REACTIONS (11)
  - Proctitis [Unknown]
  - Crohn^s disease [Unknown]
  - Inflammatory bowel disease [Unknown]
  - Anxiety [Unknown]
  - Depression [Unknown]
  - Anal abscess [Unknown]
  - Anal fistula [Unknown]
  - Panic attack [Unknown]
  - Crohn^s disease [Unknown]
  - Suicidal ideation [Unknown]
  - Osteopenia [Unknown]
